FAERS Safety Report 14596005 (Version 1)
Quarter: 2018Q1

REPORT INFORMATION
  Report Type: Spontaneous
  Country: DE (occurrence: DE)
  Receive Date: 20180303
  Receipt Date: 20180303
  Transmission Date: 20180509
  Serious: Yes (Other)
  Sender: FDA-Public Use
  Company Number: DE-TORRENT-00007880

PATIENT
  Sex: Male

DRUGS (3)
  1. XEPLION [Suspect]
     Active Substance: PALIPERIDONE PALMITATE
     Indication: PSYCHOTIC DISORDER
     Route: 030
     Dates: start: 20151201, end: 20171116
  2. TIAPRID [Suspect]
     Active Substance: TIAPRIDE HYDROCHLORIDE
     Indication: HYPERKINESIA
     Route: 065
     Dates: start: 20151201, end: 20171122
  3. OLANZAPINE. [Suspect]
     Active Substance: OLANZAPINE
     Indication: PSYCHOTIC DISORDER
     Route: 065
     Dates: start: 20151201

REACTIONS (2)
  - Thrombocytopenia [Unknown]
  - Basophil count decreased [Unknown]
